FAERS Safety Report 6129071-1 (Version None)
Quarter: 2009Q1

REPORT INFORMATION
  Report Type: 
  Country: None (occurrence: None)
  Receive Date: 20090324
  Receipt Date: 20090317
  Transmission Date: 20090719
  Serious: Yes (Death)
  Sender: FDA-Public Use
  Company Number: US-CELGENEUS-163-20785-08080349

PATIENT
  Sex: Female

DRUGS (1)
  1. THALOMID [Suspect]
     Indication: AMYLOIDOSIS
     Route: 048
     Dates: start: 20080401

REACTIONS (2)
  - AMYLOIDOSIS [None]
  - VENTRICULAR TACHYCARDIA [None]
